FAERS Safety Report 24114613 (Version 1)
Quarter: 2024Q3

REPORT INFORMATION
  Report Type: Spontaneous
  Country: US (occurrence: US)
  Receive Date: 20240720
  Receipt Date: 20240720
  Transmission Date: 20241017
  Serious: No
  Sender: STI PHARMA
  Company Number: US-STI Pharma LLC-2159353

PATIENT
  Age: 75 Year
  Sex: Female

DRUGS (4)
  1. ETHAMBUTOL HYDROCHLORIDE [Suspect]
     Active Substance: ETHAMBUTOL HYDROCHLORIDE
  2. RIFAMPIN [Concomitant]
     Active Substance: RIFAMPIN
  3. AMIKACIN [Concomitant]
     Active Substance: AMIKACIN
  4. AZITHROMYCIN [Concomitant]
     Active Substance: AZITHROMYCIN

REACTIONS (3)
  - Weight decreased [Unknown]
  - Refusal of treatment by patient [Unknown]
  - Fatigue [Unknown]
